FAERS Safety Report 7249297-3 (Version None)
Quarter: 2011Q1

REPORT INFORMATION
  Report Type: 
  Country: None (occurrence: None)
  Receive Date: 20110128
  Receipt Date: 20101209
  Transmission Date: 20110831
  Serious: Yes (Hospitalization)
  Sender: FDA-Public Use
  Company Number: AU-BAYER-2010-002873

PATIENT
  Sex: Male
  Weight: 63 kg

DRUGS (2)
  1. SORAFENIB (RAF KINASE INHIBITOR) [Suspect]
     Dosage: 200 MG, QD
     Route: 048
     Dates: start: 20080926, end: 20101103
  2. SORAFENIB (RAF KINASE INHIBITOR) [Suspect]
     Indication: RENAL CANCER METASTATIC
     Dosage: 400 MG, QD
     Route: 048
     Dates: start: 20080926, end: 20101103

REACTIONS (1)
  - CEREBRAL INFARCTION [None]
